FAERS Safety Report 4338561-3 (Version None)
Quarter: 2004Q2

REPORT INFORMATION
  Report Type: 
  Country: None (occurrence: None)
  Receive Date: 20040409
  Receipt Date: 20040402
  Transmission Date: 20050107
  Serious: Yes (Other)
  Sender: FDA-Public Use
  Company Number: DE-JNJFOC-20040400869

PATIENT
  Sex: Male

DRUGS (2)
  1. TOPAMAX [Suspect]
     Dosage: ORAL
     Route: 048
  2. KEPPRA [Concomitant]

REACTIONS (1)
  - SYSTEMIC LUPUS ERYTHEMATOSUS [None]
